FAERS Safety Report 10037459 (Version 1)
Quarter: 2014Q1

REPORT INFORMATION
  Report Type: Spontaneous
  Country: FR (occurrence: FR)
  Receive Date: 20140326
  Receipt Date: 20140326
  Transmission Date: 20141002
  Serious: Yes (Other)
  Sender: FDA-Public Use
  Company Number: FR-009507513-1403FRA010931

PATIENT
  Age: 63 Year
  Sex: Male

DRUGS (1)
  1. VELMETIA [Suspect]
     Indication: PRODUCT USED FOR UNKNOWN INDICATION
     Dosage: 1 DF, QD (1/DAY)
     Route: 048
     Dates: start: 20140213, end: 20140220

REACTIONS (6)
  - Paraesthesia [Recovered/Resolved]
  - Angioedema [Recovered/Resolved]
  - Gastrooesophageal reflux disease [Recovered/Resolved]
  - Tremor [Recovered/Resolved]
  - Nausea [Recovered/Resolved]
  - Somnolence [Recovered/Resolved]
